FAERS Safety Report 6354604-X (Version None)
Quarter: 2009Q3

REPORT INFORMATION
  Report Type: 
  Country: None (occurrence: None)
  Receive Date: 20090909
  Receipt Date: 20090903
  Transmission Date: 20100115
  Serious: Yes (Other)
  Sender: FDA-Public Use
  Company Number: A0805844A

PATIENT
  Age: 82 Year
  Sex: Female

DRUGS (1)
  1. CALCIUM CARBONATE + VITAMIN D TABLET-CHEWABLE (CA CARBONATE + VITAMIN [Suspect]
     Indication: MINERAL SUPPLEMENTATION
     Dosage: UNK / UNKNOWN / ORAL
     Route: 048

REACTIONS (2)
  - CHOKING [None]
  - WRONG TECHNIQUE IN DRUG USAGE PROCESS [None]
